FAERS Safety Report 23953231 (Version 1)
Quarter: 2024Q2

REPORT INFORMATION
  Report Type: Spontaneous
  Country: DE (occurrence: DE)
  Receive Date: 20240608
  Receipt Date: 20240608
  Transmission Date: 20240716
  Serious: Yes (Congenital Anomaly, Other)
  Sender: FDA-Public Use
  Company Number: DE-EMBRYOTOX-202004447

PATIENT
  Sex: Female
  Weight: 2.1 kg

DRUGS (7)
  1. DULOXETINE [Suspect]
     Active Substance: DULOXETINE
     Indication: Borderline personality disorder
     Dosage: 90 [MG/D ]/ 60 MG/D INITALLY, 90 MG/D FROM GW 14+1 ONWARDS
     Route: 064
     Dates: start: 20200129, end: 20201016
  2. CYTOTEC [Concomitant]
     Active Substance: MISOPROSTOL
     Indication: Labour induction
     Dosage: UNK
     Route: 064
     Dates: start: 20201016, end: 20201016
  3. SEROQUEL [Concomitant]
     Active Substance: QUETIAPINE FUMARATE
     Indication: Depression
     Dosage: 25 MILLIGRAM, AS NECESSARY
     Route: 064
  4. LORATADINE [Concomitant]
     Active Substance: LORATADINE
     Indication: Seasonal allergy
     Dosage: 10 [MG/D ]/ ON DEMAND UNTIL APPROX. GW 27 (4-5 TABLETS IN TOTAL), GW 27 ONWARDS 10 MG/D AT LEAST UNT
     Route: 064
  5. CALCIUM CARBONATE\SODIUM ALGINATE\SODIUM BICARBONATE [Concomitant]
     Active Substance: CALCIUM CARBONATE\SODIUM ALGINATE\SODIUM BICARBONATE
     Indication: Dyspepsia
     Dosage: UNK UNK, DAILY
     Route: 064
  6. PROMETHAZINE [Concomitant]
     Active Substance: PROMETHAZINE HYDROCHLORIDE
     Indication: Borderline personality disorder
     Dosage: 25 MILLIGRAM, DAILY (10-25 MG/D ON DEMAND)
     Route: 064
  7. LIVOCAB DIREKT [Concomitant]
     Indication: Hypersensitivity
     Dosage: UNK UNK, AS NECESSARY (ON DEMAND)
     Route: 064

REACTIONS (4)
  - Dandy-Walker syndrome [Not Recovered/Not Resolved]
  - Autism spectrum disorder [Not Recovered/Not Resolved]
  - Speech disorder developmental [Not Recovered/Not Resolved]
  - Foetal exposure during pregnancy [Unknown]
